FAERS Safety Report 9705885 (Version 1)
Quarter: 2013Q4

REPORT INFORMATION
  Report Type: Spontaneous
  Country: US (occurrence: US)
  Receive Date: 20131122
  Receipt Date: 20131122
  Transmission Date: 20140711
  Serious: No
  Sender: FDA-Public Use
  Company Number: US-GALDERMA-US13002524

PATIENT
  Age: 56 Year
  Sex: Female

DRUGS (2)
  1. CLOBEX (CLOBETASOL PROPIONATE) SPRAY, 0.05% [Suspect]
     Indication: DERMATITIS
     Dosage: 0.05%
     Route: 061
     Dates: start: 20130807
  2. WEN SHAMPOO [Concomitant]
     Indication: THERAPEUTIC SKIN CARE TOPICAL
     Route: 061

REACTIONS (3)
  - Headache [Not Recovered/Not Resolved]
  - Seborrhoea [Recovered/Resolved]
  - Off label use [Not Recovered/Not Resolved]
